FAERS Safety Report 9119148 (Version 1)
Quarter: 2013Q1

REPORT INFORMATION
  Report Type: Spontaneous
  Country: DK (occurrence: None)
  Receive Date: 20130130
  Receipt Date: 20130130
  Transmission Date: 20140127
  Serious: Yes (Disabling)
  Sender: FDA-Public Use
  Company Number: DK-SEPTODONT-20050749

PATIENT
  Age: 43 Year
  Sex: Female

DRUGS (1)
  1. SEPTANEST (ARTICAINE HCL 4% AND EPINEPHRINE) [Suspect]
     Indication: LOCAL ANAESTHESIA
     Dosage: DOSAGE 2 CARTRIDGES (3.4 ML OF 40 MG/ML+5 UG/ML SOLUTION FOR INJECTION.
     Dates: start: 20050620

REACTIONS (21)
  - Chest discomfort [None]
  - Dyspnoea [None]
  - Tunnel vision [None]
  - Vision blurred [None]
  - Abnormal sensation in eye [None]
  - Dizziness [None]
  - Nausea [None]
  - Dysphagia [None]
  - Illusion [None]
  - Headache [None]
  - Disturbance in attention [None]
  - Restlessness [None]
  - Initial insomnia [None]
  - Palpitations [None]
  - Cardiac fibrillation [None]
  - Migraine [None]
  - Speech disorder [None]
  - Sensory disturbance [None]
  - Neurotoxicity [None]
  - Overdose [None]
  - Hypoaesthesia [None]
